FAERS Safety Report 7262337-0 (Version None)
Quarter: 2011Q1

REPORT INFORMATION
  Report Type: 
  Country: None (occurrence: None)
  Receive Date: 20110130
  Receipt Date: 20101129
  Transmission Date: 20110831
  Serious: No
  Sender: FDA-Public Use
  Company Number: US-ABBOTT-10P-163-0687999-00

PATIENT
  Sex: Female

DRUGS (10)
  1. ACTOS [Concomitant]
     Indication: BLOOD GLUCOSE ABNORMAL
     Route: 048
  2. HUMIRA [Suspect]
     Indication: RHEUMATOID ARTHRITIS
     Dates: start: 20101122
  3. ZOLOFT [Concomitant]
     Indication: ANXIETY
     Dosage: 1/2 TABLET
  4. LISINOPRIL [Concomitant]
     Indication: HYPERTENSION
     Route: 048
  5. IRON [Concomitant]
     Indication: PRODUCT USED FOR UNKNOWN INDICATION
     Route: 048
  6. BETA CAROTENE [Concomitant]
     Indication: VISUAL IMPAIRMENT
     Route: 048
  7. PREDNISONE [Concomitant]
     Indication: ARTHRITIS
     Route: 048
  8. ASPIRIN [Concomitant]
     Indication: CARDIOVASCULAR DISORDER
  9. PLAQUENIL [Concomitant]
     Indication: ARTHRITIS
     Dosage: TWO TABLETS
     Route: 048
  10. FISH OIL [Concomitant]
     Indication: PRODUCT USED FOR UNKNOWN INDICATION

REACTIONS (1)
  - RASH [None]
